FAERS Safety Report 7304514-6 (Version None)
Quarter: 2011Q1

REPORT INFORMATION
  Report Type: 
  Country: None (occurrence: None)
  Receive Date: 20110221
  Receipt Date: 20110214
  Transmission Date: 20110831
  Serious: Yes (Death)
  Sender: FDA-Public Use
  Company Number: TR-SANOFI-AVENTIS-2009SA003596

PATIENT
  Age: 43 Year
  Sex: Male

DRUGS (5)
  1. DOCETAXEL [Suspect]
     Route: 042
     Dates: start: 20090925, end: 20090925
  2. AFLIBERCEPT [Suspect]
     Indication: NON-SMALL CELL LUNG CANCER
     Route: 042
     Dates: start: 20091016, end: 20091016
  3. AFLIBERCEPT [Suspect]
     Route: 042
     Dates: start: 20090925, end: 20090925
  4. CORTICOSTEROID NOS [Concomitant]
  5. DOCETAXEL [Suspect]
     Indication: NON-SMALL CELL LUNG CANCER
     Route: 042
     Dates: start: 20091016, end: 20091016

REACTIONS (1)
  - SUDDEN DEATH [None]
